FAERS Safety Report 6287058-2 (Version None)
Quarter: 2009Q3

REPORT INFORMATION
  Report Type: 
  Country: None (occurrence: None)
  Receive Date: 20090727
  Receipt Date: 20090727
  Transmission Date: 20100115
  Serious: No
  Sender: FDA-Public Use
  Company Number: None

PATIENT

DRUGS (1)
  1. LACTATED RINGER'S AND DEXTROSE 5% IN PLASTIC CONTAINER [Suspect]

REACTIONS (1)
  - PRODUCT CONTAINER ISSUE [None]
